FAERS Safety Report 5447000-0 (Version None)
Quarter: 2007Q3

REPORT INFORMATION
  Report Type: 
  Country: None (occurrence: None)
  Receive Date: 20070810
  Receipt Date: 20060621
  Transmission Date: 20080115
  Serious: Yes (Hospitalization)
  Sender: FDA-Public Use
  Company Number: A03200604011

PATIENT
  Age: 73 Year
  Sex: Male

DRUGS (2)
  1. UROXATRAL [Suspect]
     Indication: URINARY INCONTINENCE
     Dosage: ORAL
     Route: 048
     Dates: start: 20060406, end: 20060407
  2. REQUIP [Suspect]
     Indication: PARKINSON'S DISEASE
     Dosage: UP TITRATED FROM 2 MG TO 20 MG - ORAL
     Route: 048
     Dates: start: 20041101

REACTIONS (1)
  - SYNCOPE [None]
